FAERS Safety Report 10666201 (Version 2)
Quarter: 2014Q4

REPORT INFORMATION
  Report Type: Report from Study
  Country: IR (occurrence: IR)
  Receive Date: 20141219
  Receipt Date: 20141226
  Transmission Date: 20150529
  Serious: Yes (Death)
  Sender: FDA-Public Use
  Company Number: IR-SA-2014SA175486

PATIENT
  Age: 57 Year
  Sex: Female
  Weight: 76 kg

DRUGS (1)
  1. DOCETAXEL. [Suspect]
     Active Substance: DOCETAXEL
     Route: 065

REACTIONS (1)
  - Pulmonary embolism [Fatal]
